FAERS Safety Report 13613769 (Version 1)
Quarter: 2017Q2

REPORT INFORMATION
  Report Type: Spontaneous
  Country: US (occurrence: US)
  Receive Date: 20170606
  Receipt Date: 20170606
  Transmission Date: 20170830
  Serious: Yes (Hospitalization)
  Sender: FDA-Public Use
  Company Number: US-BAYER-2017-101406

PATIENT
  Age: 76 Year
  Sex: Male

DRUGS (8)
  1. SORAFENIB (RAF KINASE INHIBITOR) [Suspect]
     Active Substance: SORAFENIB
     Indication: HEPATOCELLULAR CARCINOMA
  2. CARVEDILOL. [Concomitant]
     Active Substance: CARVEDILOL
     Dosage: 3.125MG BY MOUTH TWICE DAILY
  3. NITROGLYCERIN. [Concomitant]
     Active Substance: NITROGLYCERIN
     Dosage: 0.4MG SUBLINGUAL AS NEEDED
  4. LISINOPRIL. [Concomitant]
     Active Substance: LISINOPRIL
     Dosage: 10 MG BY MOUTH DAILY
  5. FUROSEMIDE. [Concomitant]
     Active Substance: FUROSEMIDE
  6. ASPIRIN. [Concomitant]
     Active Substance: ASPIRIN
     Dosage: 81MG BY MOUTH DAILY
  7. WARFARIN [Concomitant]
     Active Substance: WARFARIN
     Dosage: 2.5MG BY MOUTH DAILY
  8. FUROSEMIDE. [Concomitant]
     Active Substance: FUROSEMIDE
     Dosage: 80MG BY MOUTH TWICE DAILY

REACTIONS (16)
  - Cardiogenic shock [None]
  - Hypertension [None]
  - Pleural effusion [None]
  - Hypotension [None]
  - Dyspnoea at rest [None]
  - Dyspnoea exertional [None]
  - Orthopnoea [None]
  - Oedema peripheral [None]
  - Cardiac failure [None]
  - Renal impairment [None]
  - Liver function test increased [None]
  - Pulmonary congestion [None]
  - Pulmonary hypertension [None]
  - Tachycardia [None]
  - Cardiomegaly [None]
  - Low cardiac output syndrome [None]
